FAERS Safety Report 15014911 (Version 1)
Quarter: 2018Q2

REPORT INFORMATION
  Report Type: Spontaneous
  Country: US (occurrence: US)
  Receive Date: 20180615
  Receipt Date: 20180615
  Transmission Date: 20180711
  Serious: Yes (Hospitalization, Other)
  Sender: FDA-Public Use
  Company Number: US-ACCORD-068275

PATIENT
  Age: 53 Year
  Sex: Male

DRUGS (7)
  1. FLUOROURACIL. [Suspect]
     Active Substance: FLUOROURACIL
     Indication: ADENOCARCINOMA PANCREAS
  2. TOPOTECAN [Suspect]
     Active Substance: TOPOTECAN HYDROCHLORIDE
     Indication: ADENOCARCINOMA PANCREAS
     Dosage: INDUCTION PHASE OF 0.4 MG TWICE WEEKLY FOR 4 WEEKS, CONSOLIDATION PHASE OF 0.4 MG WEEKLY THEREAFTER
     Route: 037
  3. CAPECITABINE. [Suspect]
     Active Substance: CAPECITABINE
     Indication: ADENOCARCINOMA PANCREAS
  4. IRINOTECAN [Suspect]
     Active Substance: IRINOTECAN
     Indication: ADENOCARCINOMA PANCREAS
  5. OXALIPLATIN. [Suspect]
     Active Substance: OXALIPLATIN
     Indication: ADENOCARCINOMA PANCREAS
  6. BEVACIZUMAB. [Suspect]
     Active Substance: BEVACIZUMAB
     Indication: ADENOCARCINOMA PANCREAS
  7. FOLINIC ACID [Suspect]
     Active Substance: LEUCOVORIN
     Indication: ADENOCARCINOMA PANCREAS

REACTIONS (10)
  - Off label use [Unknown]
  - Neuropathy peripheral [Unknown]
  - Disseminated intravascular coagulation [Recovered/Resolved]
  - Pneumonia [Recovered/Resolved]
  - Pyelonephritis [Unknown]
  - Septic shock [Recovered/Resolved]
  - Confusional state [Unknown]
  - Thrombocytopenia [Unknown]
  - Sepsis [Recovered/Resolved]
  - Emphysematous cystitis [Unknown]
